FAERS Safety Report 5089301-4 (Version None)
Quarter: 2006Q3

REPORT INFORMATION
  Report Type: 
  Country: None (occurrence: None)
  Receive Date: 20060822
  Receipt Date: 20060807
  Transmission Date: 20061208
  Serious: Yes (Hospitalization)
  Sender: FDA-Public Use
  Company Number: SE200602002379

PATIENT
  Age: 31 Year
  Sex: Female

DRUGS (2)
  1. ZYPREXA [Suspect]
     Indication: PERSONALITY DISORDER
     Dosage: 10 MG, ORAL
     Route: 048
  2. INSULIN [Concomitant]

REACTIONS (5)
  - AMENORRHOEA [None]
  - ANXIETY [None]
  - GALACTORRHOEA [None]
  - PYREXIA [None]
  - SARCOIDOSIS [None]
